FAERS Safety Report 13115611 (Version 1)
Quarter: 2017Q1

REPORT INFORMATION
  Report Type: Spontaneous
  Country: CA (occurrence: CA)
  Receive Date: 20170114
  Receipt Date: 20170114
  Transmission Date: 20170428
  Serious: Yes (Other)
  Sender: FDA-Public Use
  Company Number: CA-ORION CORPORATION ORION PHARMA-TREX2016-0542

PATIENT
  Age: 61 Year
  Sex: Male

DRUGS (3)
  1. ENBREL [Suspect]
     Active Substance: ETANERCEPT
     Indication: RHEUMATOID ARTHRITIS
     Route: 058
  2. METHOTREXATE (TRADE NAME UNKNOWN) [Suspect]
     Active Substance: METHOTREXATE
     Indication: RHEUMATOID ARTHRITIS
     Route: 048
     Dates: end: 20151008
  3. FOLIC ACID. [Concomitant]
     Active Substance: FOLIC ACID
     Dosage: STRENGTH: 5 MG
     Route: 065
     Dates: end: 20151008

REACTIONS (5)
  - Pneumonitis [Unknown]
  - Interstitial lung disease [Unknown]
  - Treatment failure [Unknown]
  - Contraindicated product administered [Unknown]
  - Drug intolerance [Unknown]

NARRATIVE: CASE EVENT DATE: 201510
